FAERS Safety Report 9317686 (Version 1)
Quarter: 2013Q2

REPORT INFORMATION
  Report Type: Spontaneous
  Country: US (occurrence: US)
  Receive Date: 20130530
  Receipt Date: 20130530
  Transmission Date: 20140414
  Serious: No
  Sender: FDA-Public Use
  Company Number: US-GLAXOSMITHKLINE-A0976856A

PATIENT
  Sex: Female

DRUGS (2)
  1. VENTOLIN HFA [Suspect]
     Indication: ASTHMA
     Route: 055
  2. ADVAIR [Suspect]
     Indication: ASTHMA
     Route: 055

REACTIONS (3)
  - Biopsy pharynx [Unknown]
  - Dysphonia [Unknown]
  - Pharyngeal disorder [Unknown]
